FAERS Safety Report 5343766-9 (Version None)
Quarter: 2007Q2

REPORT INFORMATION
  Report Type: 
  Country: None (occurrence: None)
  Receive Date: 20070531
  Receipt Date: 20070531
  Transmission Date: 20071010
  Serious: Yes (Hospitalization)
  Sender: FDA-Public Use
  Company Number: None

PATIENT
  Sex: Male
  Weight: 67.7 kg

DRUGS (1)
  1. SORAFENIB [Suspect]
     Indication: PROSTATE CANCER
     Dosage: 400 MG BID PO
     Route: 048
     Dates: start: 20061220

REACTIONS (2)
  - ANAEMIA [None]
  - URINARY RETENTION [None]
